FAERS Safety Report 7100356-5 (Version None)
Quarter: 2010Q4

REPORT INFORMATION
  Report Type: 
  Country: None (occurrence: None)
  Receive Date: 20101112
  Receipt Date: 20101104
  Transmission Date: 20110411
  Serious: Yes (Hospitalization, Disabling, Other)
  Sender: FDA-Public Use
  Company Number: US-MERCK-0611USA03475

PATIENT
  Age: 52 Year
  Sex: Female
  Weight: 69 kg

DRUGS (20)
  1. FOSAMAX [Suspect]
     Indication: OSTEOPOROSIS
     Route: 048
     Dates: start: 20060701, end: 20061101
  2. ACTONEL [Suspect]
     Indication: OSTEOPOROSIS
     Route: 048
     Dates: start: 20060601, end: 20060701
  3. POTASSIUM (UNSPECIFIED) [Concomitant]
     Indication: HYPOKALAEMIA
     Route: 065
     Dates: start: 19910101
  4. FUROSEMIDE [Concomitant]
     Indication: FLUID RETENTION
     Route: 065
     Dates: start: 20060301, end: 20071001
  5. GUAIFENESIN [Concomitant]
     Indication: NASAL DECONGESTION THERAPY
     Route: 065
     Dates: start: 20060101, end: 20070601
  6. QVAR 40 [Concomitant]
     Indication: ASTHMA
     Route: 065
     Dates: start: 20050801
  7. ALBUTEROL [Concomitant]
     Indication: ASTHMA
     Route: 065
     Dates: start: 20050801
  8. ACETAMINOPHEN AND HYDROCODONE BITARTRATE [Concomitant]
     Indication: ARTHRALGIA
     Route: 065
     Dates: start: 20060601
  9. ACETAMINOPHEN AND HYDROCODONE BITARTRATE [Concomitant]
     Indication: ARTHRITIS
     Route: 065
     Dates: start: 20060601
  10. HYDROXYZINE [Concomitant]
     Indication: NAUSEA
     Route: 065
     Dates: start: 20060601
  11. OXAPRAZINE [Concomitant]
     Indication: ARTHRITIS
     Route: 065
     Dates: start: 20060601, end: 20071001
  12. COLCHICINE [Concomitant]
     Indication: GOUT
     Route: 065
     Dates: start: 20060101
  13. ALLOPURINOL [Concomitant]
     Indication: GOUT
     Route: 065
     Dates: start: 20060101
  14. KETOROLAC TROMETHAMINE [Concomitant]
     Indication: ARTHRITIS
     Route: 065
     Dates: start: 20060401
  15. ERYTHROMYCIN [Concomitant]
     Indication: PROPHYLAXIS
     Route: 065
     Dates: start: 19870801
  16. FORTEO [Concomitant]
     Indication: ARTHRITIS
     Route: 030
     Dates: start: 20060601
  17. FOSAMAX PLUS D [Suspect]
     Indication: OSTEOPOROSIS
     Route: 048
  18. SEREVENT [Concomitant]
     Indication: ASTHMA
     Route: 065
     Dates: start: 20050801
  19. ASTELIN [Concomitant]
     Indication: HYPERSENSITIVITY
     Route: 065
     Dates: start: 20060101, end: 20060701
  20. KENALOG [Concomitant]
     Indication: ARTHRITIS
     Route: 065
     Dates: start: 20060701, end: 20060801

REACTIONS (45)
  - ABDOMINAL DISCOMFORT [None]
  - ADVERSE DRUG REACTION [None]
  - ALLERGY TO ARTHROPOD STING [None]
  - APHAGIA [None]
  - ARTHROPATHY [None]
  - AUTOIMMUNE DISORDER [None]
  - BRUXISM [None]
  - BUTTERFLY RASH [None]
  - CHEILITIS [None]
  - CHEST PAIN [None]
  - DEPRESSION [None]
  - DERMATITIS [None]
  - DERMATITIS CONTACT [None]
  - DRUG HYPERSENSITIVITY [None]
  - DRY MOUTH [None]
  - DYSPEPSIA [None]
  - ECCHYMOSIS [None]
  - ERYTHEMA NODOSUM [None]
  - FATIGUE [None]
  - FIBROSIS [None]
  - GENERAL SYMPTOM [None]
  - GINGIVAL PAIN [None]
  - HEADACHE [None]
  - HYPERKERATOSIS [None]
  - HYPOKALAEMIA [None]
  - INFLUENZA [None]
  - IODINE ALLERGY [None]
  - MOUTH ULCERATION [None]
  - MUSCLE SPASMS [None]
  - NECK PAIN [None]
  - NEUTROPHIL COUNT [None]
  - OSTEONECROSIS OF JAW [None]
  - OSTEOPENIA [None]
  - PULPITIS DENTAL [None]
  - ROTATOR CUFF SYNDROME [None]
  - SKIN DEGENERATIVE DISORDER [None]
  - SKIN DISORDER [None]
  - SKIN FISSURES [None]
  - SKIN LESION [None]
  - STRESS [None]
  - SUBCUTANEOUS NODULE [None]
  - TEMPOROMANDIBULAR JOINT SYNDROME [None]
  - TREATMENT NONCOMPLIANCE [None]
  - ULCER [None]
  - VITAMIN D DEFICIENCY [None]
